FAERS Safety Report 5633541-X (Version None)
Quarter: 2008Q1

REPORT INFORMATION
  Report Type: 
  Country: None (occurrence: None)
  Receive Date: 20080219
  Receipt Date: 20080205
  Transmission Date: 20080703
  Serious: Yes (Other)
  Sender: FDA-Public Use
  Company Number: 44985

PATIENT

DRUGS (1)
  1. HALOPERIDOL LACTATE [Suspect]

REACTIONS (1)
  - MEDICATION ERROR [None]
